FAERS Safety Report 9923996 (Version 4)
Quarter: 2014Q2

REPORT INFORMATION
  Report Type: Spontaneous
  Country: US (occurrence: US)
  Receive Date: 20140225
  Receipt Date: 20140523
  Transmission Date: 20141212
  Serious: Yes (Death, Hospitalization, Other)
  Sender: FDA-Public Use
  Company Number: US-GILEAD-2014-0095029

PATIENT
  Age: 8 Year
  Sex: Male

DRUGS (2)
  1. CAYSTON [Suspect]
     Indication: CYSTIC FIBROSIS LUNG
     Dosage: 75 MG, ALTERNATES THERAPY WITH TOBI
     Route: 055
     Dates: start: 20100411
  2. TOBI                               /00304201/ [Concomitant]
     Dosage: ALTERNATES THERAPY WITH CAYSTON

REACTIONS (2)
  - Malaise [Unknown]
  - Cystic fibrosis [Fatal]
